FAERS Safety Report 7411374-1 (Version None)
Quarter: 2011Q2

REPORT INFORMATION
  Report Type: 
  Country: None (occurrence: None)
  Receive Date: 20110413
  Receipt Date: 20100701
  Transmission Date: 20111010
  Serious: Yes (Other)
  Sender: FDA-Public Use
  Company Number: US-BRISTOL-MYERS SQUIBB COMPANY-15174238

PATIENT
  Sex: Male

DRUGS (5)
  1. ALBUTEROL [Concomitant]
     Indication: PREMEDICATION
  2. BENADRYL [Concomitant]
     Indication: PREMEDICATION
  3. PEPCID [Concomitant]
     Indication: PREMEDICATION
  4. ERBITUX [Suspect]
     Dates: start: 20100630
  5. SOLU-CORTEF [Concomitant]
     Indication: PREMEDICATION

REACTIONS (1)
  - INFUSION RELATED REACTION [None]
